FAERS Safety Report 23127795 (Version 2)
Quarter: 2023Q4

REPORT INFORMATION
  Report Type: Report from Study
  Country: FR (occurrence: None)
  Receive Date: 20231031
  Receipt Date: 20231031
  Transmission Date: 20240109
  Serious: Yes (Hospitalization)
  Sender: FDA-Public Use
  Company Number: FR-ROCHE-3446937

PATIENT
  Age: 66 Year
  Sex: Male
  Weight: 72 kg

DRUGS (12)
  1. ATEZOLIZUMAB [Suspect]
     Active Substance: ATEZOLIZUMAB
     Indication: Squamous cell carcinoma of head and neck
     Route: 041
     Dates: start: 20201106
  2. BEVACIZUMAB [Suspect]
     Active Substance: BEVACIZUMAB
     Indication: Squamous cell carcinoma of head and neck
     Route: 042
     Dates: start: 20201106, end: 20220715
  3. ASPIRIN [Concomitant]
     Active Substance: ASPIRIN
     Route: 048
  4. PERINDOPRIL [Concomitant]
     Active Substance: PERINDOPRIL
     Route: 048
  5. BISOPROLOL [Concomitant]
     Active Substance: BISOPROLOL\BISOPROLOL FUMARATE
  6. ZOPICLONE [Concomitant]
     Active Substance: ZOPICLONE
  7. OXAZEPAM [Concomitant]
     Active Substance: OXAZEPAM
  8. ESOMEPRAZOLE [Concomitant]
     Active Substance: ESOMEPRAZOLE
  9. PREGABALIN [Concomitant]
     Active Substance: PREGABALIN
  10. SIMVASTATIN [Concomitant]
     Active Substance: SIMVASTATIN
  11. MIRTAZAPINE [Concomitant]
     Active Substance: MIRTAZAPINE
  12. NICOTINE [Concomitant]
     Active Substance: NICOTINE

REACTIONS (1)
  - Osteoradionecrosis [Recovered/Resolved]

NARRATIVE: CASE EVENT DATE: 20221030
